FAERS Safety Report 9766536 (Version 1)
Quarter: 2013Q4

REPORT INFORMATION
  Report Type: Spontaneous
  Country: US (occurrence: US)
  Receive Date: 20131217
  Receipt Date: 20131217
  Transmission Date: 20140711
  Serious: No
  Sender: FDA-Public Use
  Company Number: US-BIOGENIDEC-2013BI111364

PATIENT
  Sex: Female
  Weight: 63 kg

DRUGS (9)
  1. TECFIDERA [Suspect]
     Indication: PRODUCT USED FOR UNKNOWN INDICATION
     Route: 048
  2. LAMICTAL [Concomitant]
  3. SANCTURA [Concomitant]
  4. CLONAZEPAM [Concomitant]
  5. TRAZODONE [Concomitant]
  6. SINGULAIR [Concomitant]
  7. CYMBALTA [Concomitant]
  8. THEOPHYLLINE CR [Concomitant]
  9. VITAMIN D [Concomitant]

REACTIONS (1)
  - Confusional state [Unknown]
